FAERS Safety Report 11403874 (Version 5)
Quarter: 2015Q4

REPORT INFORMATION
  Report Type: Spontaneous
  Country: JP (occurrence: JP)
  Receive Date: 20150821
  Receipt Date: 20151130
  Transmission Date: 20160304
  Serious: Yes (Other)
  Sender: FDA-Public Use
  Company Number: JP-WATSON-2015-15759

PATIENT
  Age: 73 Year
  Sex: Male

DRUGS (15)
  1. BETANIS [Concomitant]
     Active Substance: MIRABEGRON
     Indication: HYPERTONIC BLADDER
     Dosage: 50 MG, UNKNOWN
     Route: 048
     Dates: start: 20150123, end: 20150223
  2. BAYASPIRIN [Concomitant]
     Active Substance: ASPIRIN
     Indication: ANGINA PECTORIS
     Dosage: 100 MG, UNKNOWN
     Route: 048
     Dates: start: 20150128
  3. SILODOSIN (UNKNOWN) [Suspect]
     Active Substance: SILODOSIN
     Indication: DYSURIA
     Dosage: 4 MG, BID (AFTER BREAKFAST AND DINNER)
     Route: 048
     Dates: start: 20120724, end: 20150109
  4. AVOLVE [Concomitant]
     Active Substance: DUTASTERIDE
     Indication: BENIGN PROSTATIC HYPERPLASIA
     Dosage: 0.5 MG, UNKNOWN
     Route: 048
     Dates: start: 20150123, end: 20150223
  5. TAKEPRON [Concomitant]
     Active Substance: LANSOPRAZOLE
     Indication: GASTRIC ULCER
     Dosage: 15 MG, UNK
     Route: 048
     Dates: start: 20150111, end: 20150223
  6. LENDORMIN [Concomitant]
     Active Substance: BROTIZOLAM
     Indication: INSOMNIA
     Dosage: 0.25 MG, PRN
     Route: 048
     Dates: start: 20150115
  7. SILODOSIN (UNKNOWN) [Interacting]
     Active Substance: SILODOSIN
     Dosage: 4 MG, BID (AFTER BREAKFAST AND DINNER)
     Route: 048
     Dates: start: 20150123, end: 20150223
  8. SILODOSIN (UNKNOWN) [Interacting]
     Active Substance: SILODOSIN
     Dosage: 4 MG, BID (AFTER BREAKFAST AND DINNER)
     Route: 048
     Dates: start: 20150306
  9. RILMAZAFONE HYDROCHLORIDE [Concomitant]
     Active Substance: RILMAZAFONE HYDROCHLORIDE
     Indication: INSOMNIA
     Dosage: 2 MG, PRN
     Route: 048
     Dates: start: 20150112
  10. LAMICTAL [Interacting]
     Active Substance: LAMOTRIGINE
     Dosage: 100 MG, UNKNOWN
     Route: 048
     Dates: start: 20150207, end: 20150220
  11. LOXONIN [Concomitant]
     Active Substance: LOXOPROFEN SODIUM
     Indication: PRODUCT USED FOR UNKNOWN INDICATION
     Dosage: 60 MG, PRN
     Route: 048
     Dates: start: 20150115
  12. WARFARIN [Concomitant]
     Active Substance: WARFARIN
     Indication: VENOUS THROMBOSIS LIMB
     Dosage: 2 MG, UNKNOWN
     Route: 048
     Dates: start: 20150120, end: 20150220
  13. GRAMALIL [Concomitant]
     Active Substance: TIAPRIDE HYDROCHLORIDE
     Indication: DYSKINESIA
     Dosage: 75 MG, UNKNOWN
     Route: 048
     Dates: start: 20150126, end: 20150223
  14. LAMICTAL [Interacting]
     Active Substance: LAMOTRIGINE
     Indication: TEMPORAL LOBE EPILEPSY
     Dosage: 25 MG, DAILY
     Route: 048
     Dates: start: 20150110, end: 20150123
  15. LAMICTAL [Interacting]
     Active Substance: LAMOTRIGINE
     Dosage: 50 MG, DAILY
     Route: 048
     Dates: start: 20150124, end: 20150206

REACTIONS (2)
  - Stevens-Johnson syndrome [Recovered/Resolved]
  - Drug interaction [Recovered/Resolved]

NARRATIVE: CASE EVENT DATE: 20150219
